FAERS Safety Report 10264784 (Version 2)
Quarter: 2014Q2

REPORT INFORMATION
  Report Type: Spontaneous
  Country: JP (occurrence: JP)
  Receive Date: 20140627
  Receipt Date: 20140627
  Transmission Date: 20141212
  Serious: Yes (Other)
  Sender: FDA-Public Use
  Company Number: JP-B.I. PHARMACEUTICALS,INC./RIDGEFIELD-2014-BI-28456NB

PATIENT
  Age: 61 Year
  Sex: Male

DRUGS (6)
  1. BI-SIFROL [Suspect]
     Indication: PARKINSON^S DISEASE
     Route: 065
     Dates: start: 2007, end: 201210
  2. MIRAPEX LA [Suspect]
     Indication: PARKINSON^S DISEASE
     Dosage: 3 MG
     Route: 048
     Dates: start: 201210
  3. ZONISAMIDE [Suspect]
     Indication: PARKINSON^S DISEASE
     Dosage: 50 MG
     Route: 048
  4. DOPACOL [Suspect]
     Indication: PARKINSON^S DISEASE
     Dosage: 200 MG
     Route: 048
  5. DOPS OD [Suspect]
     Indication: PARKINSON^S DISEASE
     Dosage: 200 MG
     Route: 048
  6. LANSOPRAZOLE OD [Concomitant]
     Indication: GASTROOESOPHAGEAL REFLUX DISEASE
     Dosage: 15 MG
     Route: 048

REACTIONS (1)
  - Posture abnormal [Not Recovered/Not Resolved]
